FAERS Safety Report 4691173-4 (Version None)
Quarter: 2005Q2

REPORT INFORMATION
  Report Type: 
  Country: None (occurrence: None)
  Receive Date: 20050610
  Receipt Date: 20050531
  Transmission Date: 20051028
  Serious: Yes (Hospitalization)
  Sender: FDA-Public Use
  Company Number: 2005081927

PATIENT
  Age: 57 Year
  Sex: Female

DRUGS (14)
  1. LIPITOR [Suspect]
     Indication: ILL-DEFINED DISORDER
  2. PREDNISONE TAB [Suspect]
     Indication: ILL-DEFINED DISORDER
  3. LISINOPRIL [Suspect]
     Indication: ILL-DEFINED DISORDER
  4. AVELOX [Suspect]
     Indication: BRONCHITIS
     Dates: start: 20050324
  5. TIAZAC [Suspect]
     Indication: ILL-DEFINED DISORDER
  6. NASONEX [Suspect]
     Indication: ILL-DEFINED DISORDER
  7. ESTACE (ESTRADIOL) [Concomitant]
  8. NASACORT [Concomitant]
  9. NAPROSYN [Concomitant]
  10. LASIX [Concomitant]
  11. TOPROL-XL [Concomitant]
  12. HUMIBID LA (GUAIFENESIN) [Concomitant]
  13. COMBIVENT [Concomitant]
  14. WARFARIN (WARFARIN) [Concomitant]

REACTIONS (3)
  - ABDOMINAL HAEMATOMA [None]
  - ABDOMINAL PAIN [None]
  - BRONCHITIS [None]
